FAERS Safety Report 17442086 (Version 1)
Quarter: 2020Q1

REPORT INFORMATION
  Report Type: Spontaneous
  Country: FR (occurrence: FR)
  Receive Date: 20200220
  Receipt Date: 20200220
  Transmission Date: 20200409
  Serious: Yes (Other)
  Sender: FDA-Public Use
  Company Number: FR-MYLANLABS-2020M1018780

PATIENT
  Age: 39 Year
  Sex: Male
  Weight: 93 kg

DRUGS (3)
  1. ETOPOSIDE TEVA [Suspect]
     Active Substance: ETOPOSIDE
     Indication: SEMINOMA
     Dosage: 196MG*5/CURE (DE J1 ? J5)
     Route: 042
     Dates: start: 20190325, end: 20190527
  2. BLEOMYCINE BELLON [Suspect]
     Active Substance: BLEOMYCIN SULFATE
     Indication: SEMINOMA
     Dosage: 30MG*3/CURE (A J1, J8, J15)
     Route: 042
     Dates: start: 20190325, end: 20190527
  3. CISPLATIN MYLAN [Suspect]
     Active Substance: CISPLATIN
     Indication: SEMINOMA
     Dosage: 39MG*5/CURE (DE J1 ? J5)
     Route: 042
     Dates: start: 20190325, end: 20190527

REACTIONS (1)
  - Chest pain [Not Recovered/Not Resolved]

NARRATIVE: CASE EVENT DATE: 20191004
